FAERS Safety Report 10035349 (Version 3)
Quarter: 2014Q4

REPORT INFORMATION
  Report Type: Spontaneous
  Country: JP (occurrence: JP)
  Receive Date: 20140325
  Receipt Date: 20141023
  Transmission Date: 20150528
  Serious: Yes (Other)
  Sender: FDA-Public Use
  Company Number: JP-PFIZER INC-2014078021

PATIENT
  Age: 88 Year
  Sex: Female

DRUGS (3)
  1. NORVASC [Suspect]
     Active Substance: AMLODIPINE BESYLATE
     Indication: HYPERTENSION
     Dosage: 5 MG, DAILY
     Route: 048
     Dates: start: 1995
  2. LENDORMIN [Suspect]
     Active Substance: BROTIZOLAM
     Dosage: UNK
     Route: 042
  3. CRAVIT [Suspect]
     Active Substance: LEVOFLOXACIN
     Dosage: UNK
     Route: 048

REACTIONS (3)
  - Ammonia increased [Recovered/Resolved]
  - Urinary tract infection [Unknown]
  - Altered state of consciousness [Recovered/Resolved]

NARRATIVE: CASE EVENT DATE: 20140317
